FAERS Safety Report 8814722 (Version 6)
Quarter: 2013Q2

REPORT INFORMATION
  Report Type: Report from Study
  Country: JP (occurrence: JP)
  Receive Date: 20120928
  Receipt Date: 20130610
  Transmission Date: 20140414
  Serious: Yes (Hospitalization, Other)
  Sender: FDA-Public Use
  Company Number: JP-009507513-1209JPN010506

PATIENT
  Age: 61 Year
  Sex: Female
  Weight: 51 kg

DRUGS (13)
  1. PEGINTRON [Suspect]
     Indication: CHRONIC HEPATITIS C
     Dosage: 1.5 MICROGRAM PER KILOGRAM, QW
     Route: 058
     Dates: start: 20120705, end: 20120829
  2. REBETOL [Suspect]
     Indication: CHRONIC HEPATITIS C
     Dosage: 600 MG, QD
     Route: 048
     Dates: start: 20120705, end: 20120724
  3. REBETOL [Suspect]
     Dosage: 400 MG, QD
     Route: 048
     Dates: start: 20120725, end: 20120731
  4. REBETOL [Suspect]
     Dosage: 200 MG, QD
     Route: 048
     Dates: start: 20120801, end: 20120807
  5. REBETOL [Suspect]
     Dosage: 100 MG, QD
     Route: 048
     Dates: start: 20120808, end: 20120903
  6. TELAVIC [Suspect]
     Indication: CHRONIC HEPATITIS C
     Dosage: 1500 MG, QD
     Route: 048
     Dates: start: 20120705, end: 20120903
  7. RIKKUNSHI-TO [Suspect]
     Indication: ADVERSE EVENT
     Dosage: 7.5 G, QD
     Route: 048
     Dates: start: 20120706, end: 20120807
  8. ALLEGRA [Suspect]
     Indication: ADVERSE EVENT
     Dosage: 120 MG, QD, POR (OTHER PURPOSES: FOR ADMINISTERATION OF PREDONINE)
     Route: 048
     Dates: start: 20120711, end: 20120905
  9. ZYLORIC [Suspect]
     Indication: ADVERSE EVENT
     Dosage: 200 MG, QD, POR (OTHER PURPOSES: HYPERURICEMIA IMPROVEMENT)
     Route: 048
     Dates: start: 20120801, end: 20120905
  10. ZYLORIC [Suspect]
     Indication: HYPERURICAEMIA
  11. GASMOTIN [Suspect]
     Indication: ADVERSE EVENT
     Dosage: 15 MG, QD, POR (OTHER PURPOSES: GASTROINTESTINAL SYMPTOM IMPROVEMENT
     Route: 048
     Dates: start: 20120808, end: 20120905
  12. GASMOTIN [Suspect]
     Indication: GASTROINTESTINAL DISORDER
  13. [COMPOSITION UNSPECIFIED] OTHER AGENTS AFFECTING DIGESTIVE ORGANS [Concomitant]

REACTIONS (6)
  - Anaemia [Recovered/Resolved]
  - Drug eruption [Recovered/Resolved]
  - Drug eruption [Recovered/Resolved]
  - Drug eruption [Recovered/Resolved]
  - Renal impairment [Recovered/Resolved]
  - Renal impairment [Recovered/Resolved]
